FAERS Safety Report 7486134-6 (Version None)
Quarter: 2011Q2

REPORT INFORMATION
  Report Type: 
  Country: None (occurrence: None)
  Receive Date: 20110517
  Receipt Date: 20110511
  Transmission Date: 20111010
  Serious: Yes (Death, Hospitalization, Other)
  Sender: FDA-Public Use
  Company Number: US-PFIZER INC-001-0991-M0001742

PATIENT
  Sex: Female
  Weight: 112.94 kg

DRUGS (29)
  1. ZESTORETIC [Suspect]
     Dosage: DAILY
     Dates: start: 19980725, end: 19981010
  2. PERCOCET [Suspect]
  3. DEMADEX [Concomitant]
  4. ACETAMINOPHEN [Concomitant]
     Dosage: UNK
  5. OATMEAL BATH [Concomitant]
  6. TROGLITAZONE [Suspect]
     Indication: TYPE 2 DIABETES MELLITUS
     Dosage: DAILY
     Route: 048
     Dates: start: 19980917, end: 19981002
  7. CARDIZEM CD [Suspect]
  8. SYNTHROID [Suspect]
     Dosage: UNK
     Dates: end: 19981029
  9. PREDNISONE [Suspect]
     Dosage: DAILY
     Dates: start: 19981105
  10. CARDURA [Concomitant]
     Dosage: UNK
     Dates: start: 19980702
  11. CLOTRIMAZOLE [Concomitant]
  12. HYDROCORTISONE VALERATE [Concomitant]
     Dates: start: 19981001
  13. BACTROBAN [Concomitant]
     Dosage: UNK
  14. HUMULIN 70/30 [Concomitant]
  15. DIPHENHYDRAM [Concomitant]
  16. HYDROCORTISONE CREAM [Concomitant]
  17. SENOKOT TAB [Concomitant]
     Dosage: UNK
     Dates: start: 19981001
  18. TRIAMCINOLON OINTMENT [Concomitant]
     Dates: start: 19981001
  19. VITAMIN A + D OINTMENT [Concomitant]
     Dosage: UNK
     Dates: start: 19981001
  20. INSULIN [Concomitant]
     Dosage: UNK
  21. NOVOLIN 70/30 [Concomitant]
     Dosage: UNK
  22. SOLU-MEDROL [Concomitant]
     Dosage: UNK
  23. APAP TAB [Concomitant]
     Dosage: UNK
     Dates: start: 19980702
  24. GLUCOTROL XL [Suspect]
     Indication: TYPE 2 DIABETES MELLITUS
     Dosage: 10 MG, 2X/DAY
     Dates: start: 19980917, end: 19981027
  25. PREDNISONE [Suspect]
     Dosage: DAILY
     Dates: start: 19981010
  26. AMLACTIN [Concomitant]
  27. DELTASONE [Concomitant]
     Dates: start: 19981011
  28. DIOCTYL [Concomitant]
  29. EUCERIN [Concomitant]
     Dosage: UNK

REACTIONS (67)
  - CORNEAL PERFORATION [None]
  - OCCULT BLOOD [None]
  - DYSPNOEA [None]
  - HYPOTHYROIDISM [None]
  - GENERALISED OEDEMA [None]
  - HYPERKALAEMIA [None]
  - RENAL FAILURE ACUTE [None]
  - HEPATORENAL SYNDROME [None]
  - EMOTIONAL DISTRESS [None]
  - ABDOMINAL DISTENSION [None]
  - DEHYDRATION [None]
  - PULMONARY OEDEMA [None]
  - HYPONATRAEMIA [None]
  - LIVER DISORDER [None]
  - PSORIASIS [None]
  - HEPATITIS [None]
  - ANAEMIA [None]
  - HYPERTENSION [None]
  - HYPOGLYCAEMIA [None]
  - JAUNDICE [None]
  - PALMAR ERYTHEMA [None]
  - BACTERIAL INFECTION [None]
  - CANDIDIASIS [None]
  - FALL [None]
  - ILL-DEFINED DISORDER [None]
  - NASAL OBSTRUCTION [None]
  - MYOPATHY [None]
  - DERMATITIS EXFOLIATIVE [None]
  - SEPSIS [None]
  - ERYTHEMA MULTIFORME [None]
  - VIRAL INFECTION [None]
  - ATRIAL FIBRILLATION [None]
  - COUGH [None]
  - DEAFNESS UNILATERAL [None]
  - EUTHYROID SICK SYNDROME [None]
  - PRURITUS [None]
  - ALOPECIA [None]
  - DRUG HYPERSENSITIVITY [None]
  - RASH [None]
  - HEPATIC ENCEPHALOPATHY [None]
  - RESPIRATORY FAILURE [None]
  - VISUAL ACUITY REDUCED [None]
  - DYSPNOEA EXERTIONAL [None]
  - HYPERKERATOSIS [None]
  - KERATOPATHY [None]
  - CHOLESTASIS [None]
  - FATIGUE [None]
  - ELECTROENCEPHALOGRAM ABNORMAL [None]
  - ACUTE PRERENAL FAILURE [None]
  - DIABETES MELLITUS INADEQUATE CONTROL [None]
  - PNEUMONIA [None]
  - LUPUS-LIKE SYNDROME [None]
  - HYPERGLYCAEMIA [None]
  - ANXIETY [None]
  - COORDINATION ABNORMAL [None]
  - COLONIC POLYP [None]
  - DECREASED APPETITE [None]
  - MENTAL STATUS CHANGES [None]
  - URINARY TRACT INFECTION [None]
  - STAPHYLOCOCCAL INFECTION [None]
  - THROMBOCYTOPENIA [None]
  - CARDIAC FAILURE CONGESTIVE [None]
  - PAIN [None]
  - CONSTIPATION [None]
  - DECUBITUS ULCER [None]
  - INSOMNIA [None]
  - PERONEAL NERVE PALSY [None]
